FAERS Safety Report 19807698 (Version 7)
Quarter: 2025Q3

REPORT INFORMATION
  Report Type: Spontaneous
  Country: US (occurrence: US)
  Receive Date: 20210908
  Receipt Date: 20250814
  Transmission Date: 20251020
  Serious: Yes (Hospitalization, Other)
  Sender: PFIZER
  Company Number: US-PFIZER INC-202101128260

PATIENT
  Age: 91 Year
  Sex: Female
  Weight: 54.422 kg

DRUGS (3)
  1. IBRANCE [Suspect]
     Active Substance: PALBOCICLIB
     Indication: Breast cancer metastatic
     Route: 048
  2. AMLODIPINE [Concomitant]
     Active Substance: AMLODIPINE BESYLATE
     Indication: Blood pressure abnormal
     Dosage: UNK UNK, 1X/DAY (ONE A DAY)
  3. LETROZOLE [Concomitant]
     Active Substance: LETROZOLE
     Dosage: UNK UNK, 1X/DAY (ONE A DAY, EVERYDAY)

REACTIONS (2)
  - Fall [Unknown]
  - Deafness [Unknown]
